FAERS Safety Report 9928223 (Version 1)
Quarter: 2014Q1

REPORT INFORMATION
  Report Type: Spontaneous
  Country: US (occurrence: None)
  Receive Date: 20140226
  Receipt Date: 20140226
  Transmission Date: 20141002
  Serious: Yes (Disabling, Other)
  Sender: FDA-Public Use
  Company Number: None

PATIENT
  Age: 55 Day
  Sex: Female
  Weight: 58.06 kg

DRUGS (1)
  1. LOVASTATIN [Suspect]
     Indication: BLOOD CHOLESTEROL INCREASED
     Route: 048
     Dates: start: 20130925, end: 20140225

REACTIONS (5)
  - Muscle spasms [None]
  - Weight decreased [None]
  - Hypotonia [None]
  - Abdominal pain upper [None]
  - Diarrhoea [None]
